FAERS Safety Report 5133601-6 (Version None)
Quarter: 2006Q4

REPORT INFORMATION
  Report Type: 
  Country: None (occurrence: None)
  Receive Date: 20061024
  Receipt Date: 20060501
  Transmission Date: 20070319
  Serious: No
  Sender: FDA-Public Use
  Company Number: US-AMGEN-US178225

PATIENT
  Sex: Female

DRUGS (3)
  1. SENSIPAR [Suspect]
     Indication: HYPERPARATHYROIDISM SECONDARY
     Route: 048
     Dates: start: 20050101, end: 20060401
  2. SPIRONOLACTONE [Concomitant]
     Route: 065
  3. ACTONEL [Concomitant]
     Route: 065

REACTIONS (2)
  - BALANCE DISORDER [None]
  - DIZZINESS [None]
